FAERS Safety Report 17205545 (Version 1)
Quarter: 2019Q4

REPORT INFORMATION
  Report Type: Spontaneous
  Country: US (occurrence: US)
  Receive Date: 20191204
  Receipt Date: 20191204
  Transmission Date: 20200122
  Serious: No
  Sender: FDA-Public Use
  Company Number: None

PATIENT
  Age: 83 Year
  Sex: Male

DRUGS (2)
  1. ESBRIET [Suspect]
     Active Substance: PIRFENIDONE
     Indication: INTERSTITIAL LUNG DISEASE
     Route: 048
     Dates: start: 20190403
  2. AMITRIPTLYN [Concomitant]

REACTIONS (3)
  - Inability to afford medication [None]
  - Therapy cessation [None]
  - Surgery [None]

NARRATIVE: CASE EVENT DATE: 201910
